FAERS Safety Report 4630310-4 (Version None)
Quarter: 2005Q2

REPORT INFORMATION
  Report Type: 
  Country: None (occurrence: None)
  Receive Date: 20050405
  Receipt Date: 20050405
  Transmission Date: 20051028
  Serious: Yes (Hospitalization)
  Sender: FDA-Public Use
  Company Number: None

PATIENT
  Age: 12 Year
  Sex: Female
  Weight: 47 kg

DRUGS (4)
  1. METHOTREXATE [Suspect]
     Indication: ACUTE LYMPHOCYTIC LEUKAEMIA
     Dosage: 15 MG INTRATHECALLY 5 GRAM/M2 WK 24HRS
     Route: 037
     Dates: start: 20041229, end: 20050101
  2. METHOTREXATE [Suspect]
     Indication: ACUTE LYMPHOCYTIC LEUKAEMIA
     Dosage: 15 MG INTRATHECALLY 5 GRAM/M2 WK 24HRS
     Route: 037
     Dates: start: 20041229
  3. MERCAPTOPURINE [Concomitant]
  4. VINCRISTINE [Concomitant]

REACTIONS (3)
  - ASTHENIA [None]
  - CRANIAL NERVE PARALYSIS [None]
  - DRUG TOXICITY [None]
